FAERS Safety Report 4807852-1 (Version None)
Quarter: 2005Q4

REPORT INFORMATION
  Report Type: 
  Country: None (occurrence: None)
  Receive Date: 20051021
  Receipt Date: 20051005
  Transmission Date: 20060501
  Serious: Yes (Hospitalization, Disabling)
  Sender: FDA-Public Use
  Company Number: 12675

PATIENT
  Age: 6 Year
  Sex: Male

DRUGS (4)
  1. VINCRISTINE [Suspect]
     Indication: ACUTE LYMPHOCYTIC LEUKAEMIA
  2. METHOTREXATE [Concomitant]
  3. PREDNISONE [Concomitant]
  4. MERCAPTOPURINE [Concomitant]

REACTIONS (8)
  - CHOREA [None]
  - CONSTIPATION [None]
  - DYSURIA [None]
  - INCORRECT ROUTE OF DRUG ADMINISTRATION [None]
  - NEUROTOXICITY [None]
  - QUADRIPLEGIA [None]
  - RESPIRATORY DISTRESS [None]
  - URINARY RETENTION [None]
